FAERS Safety Report 15915771 (Version 1)
Quarter: 2019Q1

REPORT INFORMATION
  Report Type: Spontaneous
  Country: US (occurrence: US)
  Receive Date: 20190111
  Receipt Date: 20190111
  Transmission Date: 20190417
  Serious: No
  Sender: FDA-Public Use
  Company Number: None

PATIENT
  Age: 85 Year
  Sex: Female

DRUGS (1)
  1. CAPECITABINE TAB 500MG [Suspect]
     Active Substance: CAPECITABINE
     Dates: start: 20181001

REACTIONS (5)
  - Pruritus [None]
  - Chapped lips [None]
  - Erythema [None]
  - Skin exfoliation [None]
  - Dry skin [None]

NARRATIVE: CASE EVENT DATE: 20190111
